FAERS Safety Report 21180423 (Version 2)
Quarter: 2022Q3

REPORT INFORMATION
  Report Type: Spontaneous
  Country: TN (occurrence: TN)
  Receive Date: 20220806
  Receipt Date: 20220820
  Transmission Date: 20221027
  Serious: Yes (Hospitalization, Other)
  Sender: FDA-Public Use
  Company Number: TN-Accord-271948

PATIENT
  Age: 17 Year
  Sex: Female

DRUGS (5)
  1. METHOTREXATE [Suspect]
     Active Substance: METHOTREXATE
     Indication: Acute lymphocytic leukaemia
     Dosage: HD-MTX (5 G/M2) ON DAY 8, HIGH-DOSE
     Route: 042
     Dates: start: 2021, end: 2021
  2. DEXAMETHASONE [Concomitant]
     Active Substance: DEXAMETHASONE
     Indication: Acute lymphocytic leukaemia
     Dosage: DAY 1-28
     Dates: start: 2021, end: 2021
  3. VINCRISTINE [Concomitant]
     Active Substance: VINCRISTINE
     Indication: Acute lymphocytic leukaemia
     Dosage: 1.5 MG/M2
     Dates: start: 2021, end: 2021
  4. LEUCOVORIN [Concomitant]
     Active Substance: LEUCOVORIN
     Indication: Acute lymphocytic leukaemia
  5. SODIUM BICARBONATE [Concomitant]
     Active Substance: SODIUM BICARBONATE
     Indication: Hypervolaemia
     Dosage: STRENGTH:1.4%, 1 L/M^2
     Dates: start: 2021

REACTIONS (5)
  - Pneumonitis [Recovered/Resolved]
  - Renal failure [Recovered/Resolved]
  - Cytopenia [Recovering/Resolving]
  - Condition aggravated [Recovering/Resolving]
  - Chemotherapeutic drug level above therapeutic [Recovered/Resolved]

NARRATIVE: CASE EVENT DATE: 20210101
